FAERS Safety Report 6365492-X (Version None)
Quarter: 2009Q3

REPORT INFORMATION
  Report Type: 
  Country: None (occurrence: None)
  Receive Date: 20090919
  Receipt Date: 20090813
  Transmission Date: 20100115
  Serious: No
  Sender: FDA-Public Use
  Company Number: US-ABBOTT-09P-163-0592180-00

PATIENT
  Sex: Female
  Weight: 86.26 kg

DRUGS (3)
  1. HUMIRA [Suspect]
     Indication: PSORIASIS
     Dosage: ONCE
     Dates: start: 20080901, end: 20080901
  2. HUMIRA [Suspect]
     Dates: start: 20080901, end: 20090601
  3. HUMIRA [Suspect]
     Dates: start: 20090708

REACTIONS (2)
  - PHARYNGITIS STREPTOCOCCAL [None]
  - PSORIASIS [None]
